FAERS Safety Report 17220529 (Version 1)
Quarter: 2019Q4

REPORT INFORMATION
  Report Type: Spontaneous
  Country: DE (occurrence: DE)
  Receive Date: 20191231
  Receipt Date: 20191231
  Transmission Date: 20200122
  Serious: Yes (Hospitalization)
  Sender: FDA-Public Use
  Company Number: DE-ALLERGAN-1942726US

PATIENT
  Sex: Female
  Weight: 58 kg

DRUGS (6)
  1. PREDNISON GALEN [Concomitant]
     Active Substance: PREDNISONE
     Dosage: UNK
     Dates: start: 201910
  2. PREDNISON GALEN [Concomitant]
     Active Substance: PREDNISONE
     Dosage: UNK
     Dates: start: 20190520, end: 20190722
  3. MESALAZINE UNK [Suspect]
     Active Substance: MESALAMINE
     Indication: COLITIS ULCERATIVE
     Route: 048
     Dates: start: 20190520, end: 20190925
  4. PREDNISON GALEN [Concomitant]
     Active Substance: PREDNISONE
     Indication: PRODUCT USED FOR UNKNOWN INDICATION
     Dosage: UNK
     Dates: start: 20190925, end: 20191006
  5. PREDNISON GALEN [Concomitant]
     Active Substance: PREDNISONE
     Dosage: UNK
     Dates: start: 20190722, end: 20190805
  6. PREDNISON GALEN [Concomitant]
     Active Substance: PREDNISONE
     Dosage: UNK
     Dates: start: 20190812, end: 20190922

REACTIONS (2)
  - Colitis ulcerative [Recovering/Resolving]
  - Acne [Recovering/Resolving]

NARRATIVE: CASE EVENT DATE: 20190805
